FAERS Safety Report 4847093-5 (Version None)
Quarter: 2005Q4

REPORT INFORMATION
  Report Type: 
  Country: None (occurrence: None)
  Receive Date: 20051206
  Receipt Date: 20051206
  Transmission Date: 20060501
  Serious: Yes (Hospitalization, Other)
  Sender: FDA-Public Use
  Company Number: None

PATIENT
  Sex: Female
  Weight: 60.9 kg

DRUGS (1)
  1. CISPLATIN [Suspect]
     Indication: LIP AND/OR ORAL CAVITY CANCER
     Dosage: SEE IMAGE
     Dates: start: 20051121, end: 20051121

REACTIONS (3)
  - HYPONATRAEMIA [None]
  - NAUSEA [None]
  - VOMITING [None]
